FAERS Safety Report 4899860-X (Version None)
Quarter: 2006Q1

REPORT INFORMATION
  Report Type: 
  Country: None (occurrence: None)
  Receive Date: 20060118
  Receipt Date: 20050718
  Transmission Date: 20060701
  Serious: No
  Sender: FDA-Public Use
  Company Number: 2005001372

PATIENT
  Age: 55 Year
  Sex: Female

DRUGS (1)
  1. TARCEVA [Suspect]
     Indication: PANCREATIC CARCINOMA
     Dosage: 150 MG (QD), ORAL
     Route: 048
     Dates: start: 20050711

REACTIONS (6)
  - CHILLS [None]
  - EYE HAEMORRHAGE [None]
  - EYE PAIN [None]
  - PYREXIA [None]
  - RASH [None]
  - URTICARIA [None]
